FAERS Safety Report 11402543 (Version 1)
Quarter: 2015Q3

REPORT INFORMATION
  Report Type: Spontaneous
  Country: US (occurrence: US)
  Receive Date: 20150821
  Receipt Date: 20150821
  Transmission Date: 20151125
  Serious: No
  Sender: FDA-Public Use
  Company Number: US-ROCHE-1252290

PATIENT
  Sex: Male
  Weight: 95.34 kg

DRUGS (3)
  1. RIBAVIRIN. [Suspect]
     Active Substance: RIBAVIRIN
     Indication: CHRONIC HEPATITIS C
     Route: 048
     Dates: start: 20130321
  2. RIBAVIRIN. [Suspect]
     Active Substance: RIBAVIRIN
     Dosage: TWO DIVIDED DOSES
     Route: 048
     Dates: start: 20130918
  3. PEGASYS [Suspect]
     Active Substance: PEGINTERFERON ALFA-2A
     Indication: CHRONIC HEPATITIS C
     Route: 058
     Dates: start: 20130321

REACTIONS (9)
  - Neuropathy peripheral [Unknown]
  - Decreased appetite [Unknown]
  - Paraesthesia [Unknown]
  - Pain [Unknown]
  - Emotional distress [Unknown]
  - Insomnia [Unknown]
  - Weight decreased [Unknown]
  - Arthralgia [Unknown]
  - Burning sensation [Unknown]
